FAERS Safety Report 4309080-5 (Version None)
Quarter: 2004Q1

REPORT INFORMATION
  Report Type: 
  Country: None (occurrence: None)
  Receive Date: 20040301
  Receipt Date: 20040212
  Transmission Date: 20041129
  Serious: No
  Sender: FDA-Public Use
  Company Number: 27802

PATIENT
  Sex: Female

DRUGS (1)
  1. TRAVOPOST 0.004% SOLUTION [Suspect]
     Route: 047

REACTIONS (4)
  - COAGULATION FACTOR VIII LEVEL DECREASED [None]
  - CONDITION AGGRAVATED [None]
  - LABORATORY TEST ABNORMAL [None]
  - MOUTH HAEMORRHAGE [None]
